FAERS Safety Report 21182078 (Version 1)
Quarter: 2022Q3

REPORT INFORMATION
  Report Type: Spontaneous
  Country: US (occurrence: US)
  Receive Date: 20220807
  Receipt Date: 20220807
  Transmission Date: 20221026
  Serious: Yes (Death, Other)
  Sender: FDA-Public Use
  Company Number: US-SA-SAC20220804000724

PATIENT
  Age: 57 Year
  Sex: Female

DRUGS (1)
  1. ZANTAC [Suspect]
     Active Substance: RANITIDINE HYDROCHLORIDE
     Indication: Dyspepsia
     Dosage: UNKNOWN AT THIS TIME QD
     Dates: start: 200001, end: 201501

REACTIONS (3)
  - Oesophageal carcinoma [Fatal]
  - Hepatic cancer [Fatal]
  - Gastric cancer [Fatal]

NARRATIVE: CASE EVENT DATE: 20140101
